FAERS Safety Report 8472129-2 (Version None)
Quarter: 2012Q2

REPORT INFORMATION
  Report Type: 
  Country: None (occurrence: None)
  Receive Date: 20120627
  Receipt Date: 20120615
  Transmission Date: 20120825
  Serious: Yes (Death, Hospitalization, Other)
  Sender: FDA-Public Use
  Company Number: GB-BRISTOL-MYERS SQUIBB COMPANY-14789986

PATIENT
  Age: 71 Year
  Sex: Female

DRUGS (11)
  1. TRANEXAMIC ACID [Suspect]
     Indication: GASTROINTESTINAL HAEMORRHAGE
     Route: 048
  2. PANTOPRAZOLE [Concomitant]
     Route: 042
  3. METFORMIN HCL [Suspect]
     Indication: TYPE 2 DIABETES MELLITUS
     Route: 065
  4. THALIDOMIDE [Concomitant]
     Dosage: REDUCED TO 200MG,THEN 100MG TAKEN EVERY NIGHT
  5. ETAMSYLATE [Suspect]
     Indication: GASTROINTESTINAL HAEMORRHAGE
     Route: 048
  6. LANSOPRAZOLE [Suspect]
     Dosage: 2 TABS 4 TIMES A DAY
     Route: 048
  7. CAPECITABINE [Suspect]
     Indication: GASTRIC CANCER
     Route: 048
  8. SUCRALFATE [Concomitant]
  9. CAPECITABINE [Suspect]
     Route: 048
  10. ACETAMINOPHEN [Suspect]
     Route: 065
  11. THEOPHYLLINE [Suspect]
     Indication: CHRONIC OBSTRUCTIVE PULMONARY DISEASE
     Route: 065

REACTIONS (6)
  - RECTAL HAEMORRHAGE [None]
  - ANAEMIA [None]
  - NEOPLASM MALIGNANT [None]
  - SEPSIS [None]
  - MELAENA [None]
  - DEATH [None]
